FAERS Safety Report 12461576 (Version 1)
Quarter: 2016Q2

REPORT INFORMATION
  Report Type: Spontaneous
  Country: US (occurrence: US)
  Receive Date: 20160613
  Receipt Date: 20160613
  Transmission Date: 20160815
  Serious: Yes (Death)
  Sender: FDA-Public Use
  Company Number: US-WATSON-2016-12397

PATIENT
  Age: 24 Year
  Sex: Female

DRUGS (2)
  1. VERAPAMIL HYDROCHLORIDE (WATSON LABORATORIES) [Suspect]
     Active Substance: VERAPAMIL HYDROCHLORIDE
     Indication: INTENTIONAL OVERDOSE
     Dosage: APPROXIMATELY 30 TABLETS OF 240 MG EXTENDED-RELEASE TABLET
     Route: 048
  2. VERAPAMIL HYDROCHLORIDE (WATSON LABORATORIES) [Suspect]
     Active Substance: VERAPAMIL HYDROCHLORIDE
     Dosage: UNKNOWN QUANTITY OF 80-MG IMMEDIATE-RELEASE
     Route: 048

REACTIONS (2)
  - Hypotension [Fatal]
  - Intentional overdose [Fatal]
